FAERS Safety Report 23418119 (Version 1)
Quarter: 2024Q1

REPORT INFORMATION
  Report Type: Spontaneous
  Country: AU (occurrence: None)
  Receive Date: 20240118
  Receipt Date: 20240118
  Transmission Date: 20240409
  Serious: Yes (Disabling)
  Sender: FDA-Public Use
  Company Number: None

PATIENT
  Age: 33 Year
  Sex: Male
  Weight: 70 kg

DRUGS (3)
  1. CITALOPRAM [Suspect]
     Active Substance: CITALOPRAM HYDROBROMIDE
     Indication: Depression
  2. CITALOPRAM [Suspect]
     Active Substance: CITALOPRAM HYDROBROMIDE
     Indication: Anxiety
  3. PAROXETINE [Suspect]
     Active Substance: PAROXETINE

REACTIONS (7)
  - Rapid eye movements sleep abnormal [None]
  - Sleep paralysis [None]
  - Sleep disorder [None]
  - Dyskinesia [None]
  - Drug withdrawal syndrome [None]
  - Temperature regulation disorder [None]
  - Insomnia [None]

NARRATIVE: CASE EVENT DATE: 20230401
